FAERS Safety Report 16947438 (Version 2)
Quarter: 2019Q4

REPORT INFORMATION
  Report Type: Spontaneous
  Country: US (occurrence: US)
  Receive Date: 20191022
  Receipt Date: 20191213
  Transmission Date: 20200122
  Serious: No
  Sender: FDA-Public Use
  Company Number: US-009507513-1910USA011674

PATIENT
  Sex: Female

DRUGS (9)
  1. MENOPUR [Concomitant]
     Active Substance: FOLLITROPIN\LUTEINIZING HORMONE
  2. METFORMIN [Concomitant]
     Active Substance: METFORMIN HYDROCHLORIDE
  3. FOLLISTIM AQ [Suspect]
     Active Substance: FOLLITROPIN
     Indication: INFERTILITY FEMALE
     Dosage: 200 UNITS, NIGHTLY AS DIRECTED
     Route: 058
     Dates: start: 20190410
  4. FOLLISTIM AQ [Suspect]
     Active Substance: FOLLITROPIN
  5. LEUPROLIDE [Concomitant]
     Active Substance: LEUPROLIDE
  6. GANIRELIX ACETATE INJECTION [Suspect]
     Active Substance: GANIRELIX ACETATE
     Indication: INFERTILITY FEMALE
     Dosage: 250 MICROGRAM WHEN DIRECTED
     Route: 058
     Dates: start: 20190410
  7. ENDOMETRIN [Concomitant]
     Active Substance: PROGESTERONE
  8. DOXYCYCLINE. [Concomitant]
     Active Substance: DOXYCYCLINE
  9. OVIDREL [Concomitant]
     Active Substance: CHORIOGONADOTROPIN ALFA

REACTIONS (2)
  - Fatigue [Unknown]
  - Somnolence [Not Recovered/Not Resolved]
